FAERS Safety Report 25793250 (Version 2)
Quarter: 2025Q4

REPORT INFORMATION
  Report Type: Report from Study
  Country: EG (occurrence: EG)
  Receive Date: 20250911
  Receipt Date: 20251016
  Transmission Date: 20260119
  Serious: Yes (Other)
  Sender: ABBVIE
  Company Number: EG-ABBVIE-6452132

PATIENT
  Age: 29 Year
  Sex: Female
  Weight: 98 kg

DRUGS (1)
  1. RINVOQ [Suspect]
     Active Substance: UPADACITINIB
     Indication: Crohn^s disease
     Dosage: 1 TABLET FORM STRENGTH: 15 MILLIGRAM
     Route: 048
     Dates: start: 20240130, end: 20250323

REACTIONS (3)
  - Abortion [Unknown]
  - Familial mediterranean fever [Recovered/Resolved]
  - Maternal exposure during pregnancy [Unknown]

NARRATIVE: CASE EVENT DATE: 20250101
